FAERS Safety Report 8732603 (Version 2)
Quarter: 2015Q2

REPORT INFORMATION
  Report Type: Report from Study
  Country: US (occurrence: US)
  Receive Date: 20120820
  Receipt Date: 20150626
  Transmission Date: 20150821
  Serious: Yes (Death, Other)
  Sender: FDA-Public Use
  Company Number: US-ROCHE-1101982

PATIENT
  Sex: Female

DRUGS (12)
  1. PROPRANOLOL [Concomitant]
     Active Substance: PROPRANOLOL\PROPRANOLOL HYDROCHLORIDE
     Route: 065
  2. VALPROIC ACID. [Concomitant]
     Active Substance: VALPROIC ACID
     Route: 042
  3. LIDOCAINE. [Concomitant]
     Active Substance: LIDOCAINE
     Route: 040
  4. ACTIVASE [Suspect]
     Active Substance: ALTEPLASE
     Dosage: 50CC OVER 1ST HOUR FOLLOWED BY 20CC 2ND HOUR
     Route: 042
  5. MORPHINE SULFATE. [Concomitant]
     Active Substance: MORPHINE SULFATE
     Route: 042
  6. HEPARIN [Concomitant]
     Active Substance: HEPARIN SODIUM
     Route: 042
  7. OXYGEN. [Concomitant]
     Active Substance: OXYGEN
  8. PAVABID [Concomitant]
     Route: 065
  9. ACTIVASE [Suspect]
     Active Substance: ALTEPLASE
     Indication: MYOCARDIAL INFARCTION
     Route: 040
  10. HEPARIN [Concomitant]
     Active Substance: HEPARIN SODIUM
     Route: 042
  11. ASA [Concomitant]
     Active Substance: ASPIRIN
     Route: 065
  12. LASIX [Concomitant]
     Active Substance: FUROSEMIDE
     Route: 042

REACTIONS (3)
  - Chest discomfort [Unknown]
  - Death [Fatal]
  - Extrasystoles [Unknown]
